FAERS Safety Report 10184207 (Version 2)
Quarter: 2014Q2

REPORT INFORMATION
  Report Type: Report from Study
  Country: JP (occurrence: JP)
  Receive Date: 20140520
  Receipt Date: 20140520
  Transmission Date: 20141212
  Serious: Yes (Hospitalization)
  Sender: FDA-Public Use
  Company Number: JP-B.I. PHARMACEUTICALS,INC./RIDGEFIELD-2014-BI-13947NB

PATIENT
  Age: 71 Year
  Sex: Male
  Weight: 59 kg

DRUGS (7)
  1. TRAZENTA [Suspect]
     Indication: TYPE 2 DIABETES MELLITUS
     Dosage: 5 MG
     Route: 048
     Dates: start: 20131219
  2. BAYASPIRIN [Concomitant]
     Dosage: 100 MG
     Route: 048
  3. PLETAAL OD [Concomitant]
     Dosage: 100 MG
     Route: 048
  4. LANSOPRAZOLE-OD [Concomitant]
     Dosage: 15 MG
     Route: 048
  5. PRAVASTATIN SODIUM [Concomitant]
     Dosage: 10 MG
     Route: 048
  6. LIPIDIL [Concomitant]
     Dosage: 160 MG
     Route: 048
  7. NOVORAPID 30 MIX [Concomitant]
     Indication: TYPE 2 DIABETES MELLITUS
     Dosage: 50 U
     Route: 058

REACTIONS (1)
  - Peripheral arterial occlusive disease [Recovered/Resolved]
